FAERS Safety Report 4390346-8 (Version None)
Quarter: 2004Q2

REPORT INFORMATION
  Report Type: 
  Country: None (occurrence: None)
  Receive Date: 20040630
  Receipt Date: 20040616
  Transmission Date: 20050107
  Serious: Yes (Death)
  Sender: FDA-Public Use
  Company Number: 04P-163-0250048-00

PATIENT
  Age: 70 Year
  Sex: Female
  Weight: 90.7194 kg

DRUGS (10)
  1. HUMIRA [Suspect]
     Indication: RHEUMATOID ARTHRITIS
     Dosage: 40 MG, 1 IN 2 WK, SUBCUTANEOUS
     Route: 058
     Dates: start: 20030601, end: 20031228
  2. PREDNISONE [Concomitant]
  3. DEXTROPROPOXYPHENE HYDROCHLORIDE [Concomitant]
  4. LEVOTHYROXINE SODIUM [Concomitant]
  5. ATORVASTATIN CALCIUM [Concomitant]
  6. FUROSEMIDE [Concomitant]
  7. POTASSIUM CHLORIDE [Concomitant]
  8. LISINOPRIL [Concomitant]
  9. FLUTICASONE PROPIONATE [Concomitant]
  10. CALCIUM [Concomitant]

REACTIONS (1)
  - RESPIRATORY FAILURE [None]
